FAERS Safety Report 4266061-8 (Version None)
Quarter: 2004Q1

REPORT INFORMATION
  Report Type: 
  Country: None (occurrence: None)
  Receive Date: 20040106
  Receipt Date: 20031223
  Transmission Date: 20041129
  Serious: Yes (Hospitalization)
  Sender: FDA-Public Use
  Company Number: F01200301536

PATIENT
  Age: 64 Year
  Sex: Female

DRUGS (3)
  1. OXALIPLATIN - SOLUTION [Suspect]
     Dosage: INTRAVENOUS NOS
     Route: 042
  2. FLUOROURACIL [Suspect]
     Dosage: INTRAVENOUS NOS
     Route: 042
  3. CPTK787/ZK 222584 OR PLACEBO - TABLET - 1250 MG [Suspect]
     Indication: COLORECTAL CANCER METASTATIC
     Dosage: 1250 MG QD, ORAL
     Route: 048
     Dates: start: 20030623

REACTIONS (4)
  - CATHETER RELATED INFECTION [None]
  - INJECTION SITE INFECTION [None]
  - LOWER RESPIRATORY TRACT INFECTION [None]
  - NEUTROPENIC SEPSIS [None]
